FAERS Safety Report 7460562-7 (Version None)
Quarter: 2011Q2

REPORT INFORMATION
  Report Type: 
  Country: None (occurrence: None)
  Receive Date: 20110505
  Receipt Date: 20110502
  Transmission Date: 20111010
  Serious: Yes (Life-Threatening)
  Sender: FDA-Public Use
  Company Number: FR-BRISTOL-MYERS SQUIBB COMPANY-15712201

PATIENT
  Age: 43 Year
  Sex: Male

DRUGS (8)
  1. OMIX [Concomitant]
     Dosage: OMIX LP SR CAPS
  2. GARDENAL [Concomitant]
     Dosage: 1 TAB/D,100MG,UNK-28FEB11,THEN 50MG/D FROM 01MAR11-18MAR11
     Route: 048
     Dates: end: 20110318
  3. ABILIFY [Suspect]
     Indication: BIPOLAR DISORDER
     Dosage: LONG TERM-20MAR11
     Route: 048
     Dates: end: 20110320
  4. KEPPRA [Concomitant]
     Dosage: FILM-COATED TABS BID FROM LONG TERM-20MAR11
     Dates: end: 20110320
  5. SEROPLEX [Suspect]
     Indication: DEPRESSION
     Dosage: 20MG 1 DF =2 SCORED FILM-COATED TABS,LONG TERM TO 20MAR11
     Route: 048
     Dates: end: 20110320
  6. NOCTRAN [Concomitant]
     Dosage: SCORED TAB FROM LONG TERM TO 20-MAR-2011
     Route: 048
     Dates: end: 20110320
  7. SERESTA [Concomitant]
     Dosage: 0.5-0.5-1 FROM LONG TERM TO 20MAR11
     Route: 048
     Dates: end: 20110320
  8. DEPAMIDE [Concomitant]
     Dosage: (1-0-2) FROM LONG TERM TO 20MAR11
     Route: 048
     Dates: end: 20110320

REACTIONS (4)
  - NEUROLEPTIC MALIGNANT SYNDROME [None]
  - MULTI-ORGAN FAILURE [None]
  - STATUS EPILEPTICUS [None]
  - COMA [None]
